FAERS Safety Report 7888961 (Version 3)
Quarter: 2014Q1

REPORT INFORMATION
  Report Type: Spontaneous
  Country: US (occurrence: US)
  Receive Date: 20110407
  Receipt Date: 20140331
  Transmission Date: 20141002
  Serious: Yes (Other)
  Sender: FDA-Public Use
  Company Number: US-ALEXION-A201100409

PATIENT
  Sex: Male

DRUGS (2)
  1. SOLIRIS 300MG [Suspect]
     Indication: PAROXYSMAL NOCTURNAL HAEMOGLOBINURIA
     Dosage: 600 MG QW
     Route: 042
     Dates: start: 20100924, end: 20101022
  2. SOLIRIS 300MG [Suspect]
     Dosage: 900 MG Q2W
     Route: 042
     Dates: start: 20101022

REACTIONS (3)
  - Aplastic anaemia [Recovering/Resolving]
  - Bone marrow myelogram abnormal [Unknown]
  - Anaemia [Unknown]
